FAERS Safety Report 7321597-8 (Version None)
Quarter: 2011Q1

REPORT INFORMATION
  Report Type: 
  Country: None (occurrence: None)
  Receive Date: 20110228
  Receipt Date: 20100706
  Transmission Date: 20110831
  Serious: No
  Sender: FDA-Public Use
  Company Number: A0870477A

PATIENT
  Sex: Female

DRUGS (2)
  1. VALACYCLOVIR [Suspect]
     Route: 065
  2. DENAVIR [Suspect]
     Route: 065

REACTIONS (1)
  - ADVERSE EVENT [None]
